FAERS Safety Report 20154458 (Version 1)
Quarter: 2021Q4

REPORT INFORMATION
  Report Type: Spontaneous
  Country: US (occurrence: US)
  Receive Date: 20211207
  Receipt Date: 20211207
  Transmission Date: 20220303
  Serious: No
  Sender: FDA-Public Use
  Company Number: US-ELI_LILLY_AND_COMPANY-US202112001348

PATIENT
  Age: 79 Year
  Sex: Female

DRUGS (1)
  1. FORTEO [Suspect]
     Active Substance: TERIPARATIDE
     Indication: Product used for unknown indication
     Dosage: UNK UNK, UNKNOWN
     Route: 058
     Dates: start: 20210429

REACTIONS (3)
  - Injection site scar [Not Recovered/Not Resolved]
  - Injection site bruising [Unknown]
  - Oxygen saturation increased [Unknown]

NARRATIVE: CASE EVENT DATE: 20211202
